FAERS Safety Report 5933825-1 (Version None)
Quarter: 2008Q4

REPORT INFORMATION
  Report Type: 
  Country: None (occurrence: None)
  Receive Date: 20081027
  Receipt Date: 20081013
  Transmission Date: 20090506
  Serious: Yes (Hospitalization, Disabling)
  Sender: FDA-Public Use
  Company Number: CERZ-1000291

PATIENT
  Age: 37 Year
  Sex: Female
  Weight: 61 kg

DRUGS (15)
  1. CEREZYME [Suspect]
     Indication: GAUCHER'S DISEASE
     Dosage: SEE IMAGE
     Route: 042
     Dates: end: 20040101
  2. CEREZYME [Suspect]
     Indication: GAUCHER'S DISEASE
     Dosage: SEE IMAGE
     Route: 042
     Dates: start: 20040101, end: 20070101
  3. CEREZYME [Suspect]
     Indication: GAUCHER'S DISEASE
     Dosage: SEE IMAGE
     Route: 042
     Dates: start: 20080401, end: 20080101
  4. CEREZYME [Suspect]
     Indication: GAUCHER'S DISEASE
     Dosage: SEE IMAGE
     Route: 042
     Dates: end: 20080101
  5. CEREZYME [Suspect]
     Indication: GAUCHER'S DISEASE
     Dosage: SEE IMAGE
     Route: 042
     Dates: start: 20080101, end: 20080401
  6. CEREZYME [Suspect]
     Indication: GAUCHER'S DISEASE
     Dosage: SEE IMAGE
     Route: 042
     Dates: start: 19961211
  7. CEREZYME [Suspect]
     Indication: GAUCHER'S DISEASE
     Dosage: SEE IMAGE
     Route: 042
     Dates: start: 20070101
  8. CEREZYME [Suspect]
     Indication: GAUCHER'S DISEASE
     Dosage: SEE IMAGE
     Route: 042
     Dates: start: 20080101
  9. PHENOXYMETHYLPENICILLIN [Concomitant]
  10. AMITRIPTYLINE HCL [Concomitant]
  11. LEXOMIL (BROMAZEPAM) (TABLET) [Concomitant]
  12. .. [Concomitant]
  13. KETOPROFEN [Concomitant]
  14. UVEDOSE (COLECALCIFEROL) [Concomitant]
  15. OROCAL (CALCIUM CARBONATE) TABLET [Concomitant]

REACTIONS (5)
  - BONE INFARCTION [None]
  - BONE PAIN [None]
  - DYSSTASIA [None]
  - OEDEMA PERIPHERAL [None]
  - TREMOR [None]
